FAERS Safety Report 25741655 (Version 3)
Quarter: 2025Q4

REPORT INFORMATION
  Report Type: Report from Study
  Country: JP (occurrence: JP)
  Receive Date: 20250829
  Receipt Date: 20251201
  Transmission Date: 20260117
  Serious: No
  Sender: SHIONOGI
  Company Number: JP-shionogi-202500008890

PATIENT
  Age: 55 Year
  Sex: Male
  Weight: 65.0 kg

DRUGS (16)
  1. CEFIDEROCOL [Suspect]
     Active Substance: CEFIDEROCOL
     Indication: Bacteraemia
     Route: 041
     Dates: start: 20241107, end: 20241120
  2. PALONOSETRON [Suspect]
     Active Substance: PALONOSETRON
     Indication: Chloroma
     Dosage: MIT-ARAC
     Route: 065
     Dates: start: 20241017
  3. MITOXANTRONE [Suspect]
     Active Substance: MITOXANTRONE HYDROCHLORIDE
     Indication: Chloroma
     Dosage: MIT-ARAC
     Route: 065
     Dates: start: 20241017
  4. CYTARABINE [Suspect]
     Active Substance: CYTARABINE
     Indication: Chloroma
     Dosage: MIT-ARAC
     Route: 065
     Dates: start: 20241017
  5. SULFAMETHOXAZOLE\TRIMETHOPRIM [Concomitant]
     Active Substance: SULFAMETHOXAZOLE\TRIMETHOPRIM
     Indication: Prophylaxis
     Route: 048
     Dates: start: 20241203, end: 20241215
  6. MAXIPIME [Concomitant]
     Active Substance: CEFEPIME HYDROCHLORIDE
     Indication: Bacteraemia
     Route: 065
     Dates: start: 20241019, end: 20241026
  7. MAXIPIME [Concomitant]
     Active Substance: CEFEPIME HYDROCHLORIDE
     Route: 065
     Dates: start: 20241102, end: 20241107
  8. LEVOFLOXACIN [Concomitant]
     Active Substance: LEVOFLOXACIN
     Indication: Bacteraemia
     Route: 048
     Dates: start: 20241026, end: 20241102
  9. TARGOCID [Concomitant]
     Active Substance: TEICOPLANIN
     Indication: Bacteraemia
     Route: 065
     Dates: start: 20241104, end: 20241105
  10. TARGOCID [Concomitant]
     Active Substance: TEICOPLANIN
     Route: 065
     Dates: start: 20241106, end: 20241107
  11. VORICONAZOLE [Concomitant]
     Active Substance: VORICONAZOLE
     Indication: Prophylaxis
     Dosage: SINCE BEFORE THE START OF FETROJA
     Route: 048
  12. FEXOFENADINE HYDROCHLORIDE [Concomitant]
     Active Substance: FEXOFENADINE HYDROCHLORIDE
     Indication: Prophylaxis
     Dosage: SINCE BEFORE THE START OF FETROJA
     Route: 048
     Dates: end: 20241120
  13. ESOMEPRAZOLE [Concomitant]
     Active Substance: ESOMEPRAZOLE
     Indication: Product used for unknown indication
     Dosage: SINCE BEFORE THE START OF FETROJA
     Route: 048
  14. URSODIOL [Concomitant]
     Active Substance: URSODIOL
     Indication: Adverse event
     Dosage: SINCE BEFORE THE START OF FETROJA
     Route: 048
  15. VANCOMYCIN [Concomitant]
     Active Substance: VANCOMYCIN
     Indication: Product used for unknown indication
     Route: 065
     Dates: start: 20241108, end: 20241108
  16. VANCOMYCIN [Concomitant]
     Active Substance: VANCOMYCIN
     Route: 065
     Dates: start: 20241109, end: 20241113

REACTIONS (2)
  - Diarrhoea [Recovered/Resolved]
  - Nausea [Recovered/Resolved]

NARRATIVE: CASE EVENT DATE: 20241210
